FAERS Safety Report 9022268 (Version 1)
Quarter: 2013Q1

REPORT INFORMATION
  Report Type: Spontaneous
  Country: IN (occurrence: IN)
  Receive Date: 20130118
  Receipt Date: 20130118
  Transmission Date: 20140127
  Serious: Yes (Death, Other)
  Sender: FDA-Public Use
  Company Number: PHHY2012IN036586

PATIENT
  Age: 45 None
  Sex: Male

DRUGS (3)
  1. GLIVEC [Suspect]
     Indication: CHRONIC MYELOID LEUKAEMIA
     Dosage: 400 MG, UNK
  2. GLIVEC [Suspect]
     Dosage: 600 MG, DAILY
  3. GLIVEC [Suspect]
     Dosage: 800 MG, UNK

REACTIONS (4)
  - Death [Fatal]
  - Chronic myeloid leukaemia [Unknown]
  - Malignant neoplasm progression [Unknown]
  - Lymphocyte count increased [Unknown]
